FAERS Safety Report 5492563-2 (Version None)
Quarter: 2007Q4

REPORT INFORMATION
  Report Type: 
  Country: None (occurrence: None)
  Receive Date: 20071022
  Receipt Date: 20071010
  Transmission Date: 20080405
  Serious: Yes (Other)
  Sender: FDA-Public Use
  Company Number: GB-PFIZER INC-2007085690

PATIENT
  Age: 24 Year
  Sex: Female
  Weight: 60.7 kg

DRUGS (1)
  1. CHAMPIX [Suspect]
     Indication: SMOKING CESSATION THERAPY
     Route: 048
     Dates: start: 20070725, end: 20070904

REACTIONS (3)
  - ABNORMAL DREAMS [None]
  - DIZZINESS [None]
  - DYSKINESIA [None]
